FAERS Safety Report 15392057 (Version 3)
Quarter: 2018Q4

REPORT INFORMATION
  Report Type: Spontaneous
  Country: US (occurrence: US)
  Receive Date: 20180917
  Receipt Date: 20181115
  Transmission Date: 20190204
  Serious: No
  Sender: FDA-Public Use
  Company Number: US-PFIZER INC-2018342420

PATIENT
  Age: 76 Year
  Sex: Female

DRUGS (8)
  1. PREMARIN [Suspect]
     Active Substance: ESTROGENS, CONJUGATED
     Indication: ATROPHIC VULVOVAGINITIS
     Dosage: 1 G, 2X/WEEK [NIGHTLY 2 X^S A WEEK]
  2. OMEPRAZOLE. [Concomitant]
     Active Substance: OMEPRAZOLE
     Dosage: UNK
  3. AMITRIPTYLINE [Concomitant]
     Active Substance: AMITRIPTYLINE
     Dosage: UNK
  4. PREMARIN [Suspect]
     Active Substance: ESTROGENS, CONJUGATED
     Dosage: 0.25 G, 2X/WEEK
  5. PREMARIN [Suspect]
     Active Substance: ESTROGENS, CONJUGATED
     Indication: DYSURIA
     Dosage: 1 G, UNK (2 WEEKS)
     Dates: start: 20180717
  6. LYRICA [Concomitant]
     Active Substance: PREGABALIN
     Dosage: UNK
  7. METOPROLOL. [Concomitant]
     Active Substance: METOPROLOL
     Dosage: UNK
  8. PREMARIN [Suspect]
     Active Substance: ESTROGENS, CONJUGATED
     Dosage: BEAN SIZE AMOUNT NIGTHLY FOR TWO WEEKS THEN TWICE A WEEK FOR 30 DAYS

REACTIONS (2)
  - Product use issue [Unknown]
  - Headache [Recovered/Resolved]
